FAERS Safety Report 14881105 (Version 2)
Quarter: 2019Q1

REPORT INFORMATION
  Report Type: Spontaneous
  Country: US (occurrence: US)
  Receive Date: 20180511
  Receipt Date: 20190107
  Transmission Date: 20190417
  Serious: No
  Sender: FDA-Public Use
  Company Number: US-PFIZER INC-2018191879

PATIENT
  Age: 73 Year
  Sex: Female

DRUGS (3)
  1. SUTENT [Suspect]
     Active Substance: SUNITINIB MALATE
     Indication: SOFT TISSUE SARCOMA
     Dosage: 37.5 MG, DAILY (EVERYDAY)
  2. SUTENT [Suspect]
     Active Substance: SUNITINIB MALATE
     Dosage: 37.5 MG, CYCLIC (14 DAYS ON AND 7 DAYS OFF)
  3. SUTENT [Suspect]
     Active Substance: SUNITINIB MALATE
     Dosage: 25 MG, CYCLIC (2 WEEKS ON AND 1 WEEK OFF)

REACTIONS (1)
  - Product use in unapproved indication [Unknown]
